FAERS Safety Report 9354198 (Version 2)
Quarter: 2013Q3

REPORT INFORMATION
  Report Type: Report from Study
  Country: FR (occurrence: FR)
  Receive Date: 20130618
  Receipt Date: 20130718
  Transmission Date: 20140515
  Serious: Yes (Life-Threatening, Hospitalization)
  Sender: FDA-Public Use
  Company Number: FR-GLAXOSMITHKLINE-R0024550A

PATIENT
  Age: 52 Year
  Sex: Male

DRUGS (2)
  1. BLINDED VACCINE [Suspect]
     Route: 030
     Dates: start: 20130502, end: 20130502
  2. FONDAPARINUX SODIUM [Suspect]
     Indication: THROMBOPHLEBITIS
     Dosage: .6ML PER DAY
     Route: 023
     Dates: start: 20130203, end: 20130512

REACTIONS (1)
  - Myocardial infarction [Not Recovered/Not Resolved]
